FAERS Safety Report 9639669 (Version 3)
Quarter: 2013Q4

REPORT INFORMATION
  Report Type: Report from Study
  Country: IE (occurrence: IE)
  Receive Date: 20131023
  Receipt Date: 20131227
  Transmission Date: 20140711
  Serious: Yes (Death)
  Sender: FDA-Public Use
  Company Number: IE-ROCHE-1289955

PATIENT
  Age: 39 Year
  Sex: Female

DRUGS (12)
  1. TRASTUZUMAB EMTANSINE [Suspect]
     Indication: PRODUCT USED FOR UNKNOWN INDICATION
     Dosage: 3.6MG/KG AS PER PROTOCOL
     Route: 042
     Dates: start: 20130304, end: 20130729
  2. ZOLEDRONIC ACID [Concomitant]
     Route: 042
  3. ONDANSETRON [Concomitant]
     Route: 042
  4. CYCLIZINE [Concomitant]
     Indication: CONSTIPATION
     Route: 042
     Dates: start: 20130729, end: 20130729
  5. CYCLIZINE [Concomitant]
     Route: 048
  6. DOMPERIDONE [Concomitant]
     Route: 048
  7. NYSTATIN [Concomitant]
     Route: 048
     Dates: start: 20130729
  8. POTASSIUM CHLORIDE [Concomitant]
     Route: 048
     Dates: start: 20130617
  9. FLUCONAZOLE [Concomitant]
     Route: 048
  10. MEFENAMIC ACID [Concomitant]
     Route: 048
  11. OMEPRAZOLE [Concomitant]
     Route: 048
  12. HYOSCINE BUTYLBROMIDE [Concomitant]
     Route: 048

REACTIONS (2)
  - Metastases to central nervous system [Fatal]
  - Constipation [Unknown]
